FAERS Safety Report 11199605 (Version 3)
Quarter: 2015Q3

REPORT INFORMATION
  Report Type: Spontaneous
  Country: JP (occurrence: JP)
  Receive Date: 20150618
  Receipt Date: 20150713
  Transmission Date: 20151125
  Serious: Yes (Other)
  Sender: FDA-Public Use
  Company Number: JP-BAYER-2015-357835

PATIENT
  Age: 63 Year
  Sex: Female

DRUGS (2)
  1. CARNACULIN [KALLIDINOGENASE] [Concomitant]
     Dosage: UNK
     Route: 048
  2. BAYASPIRIN [Suspect]
     Active Substance: ASPIRIN
     Indication: RETINAL VEIN OCCLUSION
     Dosage: 100 MG, QD
     Route: 048
     Dates: start: 20150602

REACTIONS (1)
  - Haemorrhage subcutaneous [Recovered/Resolved]

NARRATIVE: CASE EVENT DATE: 20150616
